FAERS Safety Report 24900202 (Version 1)
Quarter: 2025Q1

REPORT INFORMATION
  Report Type: Spontaneous
  Country: EG (occurrence: EG)
  Receive Date: 20250129
  Receipt Date: 20250129
  Transmission Date: 20250409
  Serious: Yes (Hospitalization, Other)
  Sender: FRESENIUS KABI
  Company Number: EG-FreseniusKabi-FK202501436

PATIENT
  Age: 57 Year
  Sex: Female
  Weight: 93 kg

DRUGS (3)
  1. PACLITAXEL [Suspect]
     Active Substance: PACLITAXEL
     Indication: Breast cancer
     Dosage: DOSE: 152 MG/D1,8,15/EVERY 21 DAYS?FOA-INTRAVENOUS INFUSION
     Route: 042
     Dates: start: 20241110
  2. CARBOPLATIN [Suspect]
     Active Substance: CARBOPLATIN
     Indication: Breast cancer
     Dosage: DOSE: 508.8 MG/D1/EVERY 21 DAYS?FOA-INTRAVENOUS INFUSION
     Route: 042
     Dates: start: 20241110
  3. PHESGO [Suspect]
     Active Substance: HYALURONIDASE-ZZXF\PERTUZUMAB\TRASTUZUMAB
     Indication: Breast cancer
     Dosage: DOSE: 600 MG/D1/EVERY 21 DAYS?FOA-INTRAVENOUS INFUSION
     Route: 042
     Dates: start: 20241110

REACTIONS (4)
  - Diarrhoea [Recovered/Resolved]
  - Renal impairment [Recovering/Resolving]
  - Decreased appetite [Not Recovered/Not Resolved]
  - Dysgeusia [Not Recovered/Not Resolved]

NARRATIVE: CASE EVENT DATE: 20241110
